FAERS Safety Report 5765864-8 (Version None)
Quarter: 2008Q2

REPORT INFORMATION
  Report Type: 
  Country: None (occurrence: None)
  Receive Date: 20080606
  Receipt Date: 20080522
  Transmission Date: 20081010
  Serious: Yes (Death)
  Sender: FDA-Public Use
  Company Number: 2008AL005795

PATIENT

DRUGS (1)
  1. DIGOXIN [Suspect]
     Dates: start: 20060308, end: 20060418

REACTIONS (1)
  - GENERAL PHYSICAL HEALTH DETERIORATION [None]
